FAERS Safety Report 4735151-5 (Version None)
Quarter: 2005Q3

REPORT INFORMATION
  Report Type: 
  Country: None (occurrence: None)
  Receive Date: 20050804
  Receipt Date: 20050707
  Transmission Date: 20060218
  Serious: Yes (Other)
  Sender: FDA-Public Use
  Company Number: USA0506101662

PATIENT
  Age: 34 Year
  Sex: Female

DRUGS (4)
  1. XIGRIS [Suspect]
     Indication: SEPSIS
     Dosage: 24 UG/KG/HR/85 HOURS
     Dates: start: 20050610
  2. FRAGMEN [Concomitant]
  3. LEVOPHED [Concomitant]
  4. DOPAMINE HCL [Concomitant]

REACTIONS (2)
  - ANEURYSM [None]
  - VISUAL DISTURBANCE [None]
